FAERS Safety Report 17899169 (Version 1)
Quarter: 2020Q2

REPORT INFORMATION
  Report Type: Spontaneous
  Country: CA (occurrence: CA)
  Receive Date: 20200615
  Receipt Date: 20200615
  Transmission Date: 20200714
  Serious: Yes (Other)
  Sender: FDA-Public Use
  Company Number: CA-TEVA-2020-CA-1248291

PATIENT
  Age: 62 Year
  Sex: Female

DRUGS (3)
  1. PANTOLOC[PANTOPRAZOLE] [Concomitant]
     Route: 065
  2. METHOTREXATE. [Suspect]
     Active Substance: METHOTREXATE
     Indication: RHEUMATOID ARTHRITIS
     Route: 058
  3. FOLIC ACID. [Concomitant]
     Active Substance: FOLIC ACID
     Route: 065

REACTIONS (8)
  - Off label use [Unknown]
  - Product use issue [Unknown]
  - Breast cancer [Unknown]
  - Viral infection [Unknown]
  - Oral herpes [Unknown]
  - Pyrexia [Unknown]
  - Sinus congestion [Unknown]
  - Therapeutic product effect incomplete [Unknown]
